FAERS Safety Report 4527063-7 (Version None)
Quarter: 2004Q4

REPORT INFORMATION
  Report Type: 
  Country: None (occurrence: None)
  Receive Date: 20041213
  Receipt Date: 20041130
  Transmission Date: 20050328
  Serious: Yes (Hospitalization)
  Sender: FDA-Public Use
  Company Number: 2004102906

PATIENT
  Age: 62 Year
  Sex: Female

DRUGS (4)
  1. SERTRALINE (SERTRALINE) [Suspect]
     Indication: DEPRESSION
     Dosage: 50 MG
  2. BUPROPION (BUPROPION) [Suspect]
     Indication: DEPRESSION
     Dosage: 300 MG
  3. VENLAFAXINE (VENLAFAXINE) [Suspect]
     Indication: DEPRESSION
     Dosage: 75 MG
  4. PIRACETAM (PIRACETAM) [Concomitant]

REACTIONS (23)
  - ALANINE AMINOTRANSFERASE INCREASED [None]
  - AMNESIA [None]
  - ASPARTATE AMINOTRANSFERASE INCREASED [None]
  - ATAXIA [None]
  - AUTONOMIC NERVOUS SYSTEM IMBALANCE [None]
  - BALANCE DISORDER [None]
  - CEREBRAL ATROPHY [None]
  - CONDITION AGGRAVATED [None]
  - COORDINATION ABNORMAL [None]
  - DEPRESSED LEVEL OF CONSCIOUSNESS [None]
  - DEPRESSION [None]
  - DIARRHOEA [None]
  - DRUG INTERACTION [None]
  - ELECTROCARDIOGRAM QT PROLONGED [None]
  - FAECAL INCONTINENCE [None]
  - FALL [None]
  - HALLUCINATIONS, MIXED [None]
  - HYPERREFLEXIA [None]
  - INSOMNIA [None]
  - MYOCLONUS [None]
  - PYREXIA [None]
  - SEROTONIN SYNDROME [None]
  - URINARY INCONTINENCE [None]
